FAERS Safety Report 6213915-9 (Version None)
Quarter: 2009Q2

REPORT INFORMATION
  Report Type: 
  Country: None (occurrence: None)
  Receive Date: 20090601
  Receipt Date: 20090601
  Transmission Date: 20091009
  Serious: Yes (Other)
  Sender: FDA-Public Use
  Company Number: None

PATIENT
  Age: 51 Year
  Sex: Female
  Weight: 83.9154 kg

DRUGS (7)
  1. HERCEPTIN [Suspect]
     Indication: CHEMOTHERAPY
     Dates: start: 20090520, end: 20090520
  2. DEXTROSE, DEXTROSE HEPARIN E. BRAUN [Suspect]
     Indication: ANTIALLERGIC THERAPY
     Dates: start: 20090520, end: 20090520
  3. DEXTROSE, DEXTROSE HEPARIN E. BRAUN [Suspect]
     Indication: ANTICOAGULANT THERAPY
     Dates: start: 20090520, end: 20090520
  4. HEPARIN WITH DEXTROSE [Concomitant]
  5. HERCEPTIN WITH SODIUM CHLORIDE [Concomitant]
  6. DEXTROSE [Concomitant]
  7. BENADRYL [Concomitant]

REACTIONS (4)
  - CARDIAC DISORDER [None]
  - EPISTAXIS [None]
  - SOMNOLENCE [None]
  - URINARY TRACT INFECTION [None]
